FAERS Safety Report 4340683-8 (Version None)
Quarter: 2004Q2

REPORT INFORMATION
  Report Type: 
  Country: None (occurrence: None)
  Receive Date: 20040413
  Receipt Date: 20030827
  Transmission Date: 20050107
  Serious: Yes (Death)
  Sender: FDA-Public Use
  Company Number: 430002X03USA

PATIENT
  Age: 60 Year
  Sex: Male

DRUGS (3)
  1. NOVANTRONE [Suspect]
     Indication: ACUTE MYELOID LEUKAEMIA
     Dates: start: 20030702, end: 20030706
  2. CYTARABINE [Suspect]
     Indication: ACUTE MYELOID LEUKAEMIA
     Dates: start: 20030702, end: 20030706
  3. DAUNORUBICIN HYDROCHLORIDE [Suspect]
     Indication: ACUTE MYELOID LEUKAEMIA
     Dosage: 45 MG/M2,

REACTIONS (8)
  - ACUTE MYELOID LEUKAEMIA [None]
  - BACTERAEMIA [None]
  - BONE MARROW DEPRESSION [None]
  - ENTEROCOCCAL INFECTION [None]
  - MALIGNANT NEOPLASM PROGRESSION [None]
  - PANCYTOPENIA [None]
  - SEPSIS [None]
  - STENOTROPHOMONAS INFECTION [None]
